FAERS Safety Report 14381153 (Version 1)
Quarter: 2018Q1

REPORT INFORMATION
  Report Type: Report from Study
  Country: CA (occurrence: CA)
  Receive Date: 20180112
  Receipt Date: 20180112
  Transmission Date: 20180509
  Serious: Yes (Death, Hospitalization)
  Sender: FDA-Public Use
  Company Number: CA-HLSUS-2018-CA-000049

PATIENT
  Age: 56 Year
  Sex: Female

DRUGS (2)
  1. QUINAPRIL HYDROCHLORIDE. [Concomitant]
     Active Substance: QUINAPRIL HYDROCHLORIDE
  2. CLOZAPINE. [Suspect]
     Active Substance: CLOZAPINE
     Indication: SCHIZOAFFECTIVE DISORDER
     Dosage: 150 MG ONE OD

REACTIONS (10)
  - Chronic obstructive pulmonary disease [Fatal]
  - Hospitalisation [Fatal]
  - Haemoconcentration [Fatal]
  - Sleep apnoea syndrome [Fatal]
  - Antipsychotic drug level increased [Fatal]
  - Death [Fatal]
  - Malaise [Fatal]
  - Polycythaemia [Fatal]
  - Full blood count increased [Fatal]
  - Lung disorder [Fatal]
